FAERS Safety Report 9589583 (Version 1)
Quarter: 2013Q4

REPORT INFORMATION
  Report Type: Spontaneous
  Country: US (occurrence: US)
  Receive Date: 20131003
  Receipt Date: 20131003
  Transmission Date: 20140711
  Serious: No
  Sender: FDA-Public Use
  Company Number: US-AMGEN-USASP2012071376

PATIENT
  Sex: Male
  Weight: 119.73 kg

DRUGS (4)
  1. ENBREL [Suspect]
     Indication: PRODUCT USED FOR UNKNOWN INDICATION
     Dosage: 50 MG, QWK
     Route: 058
  2. NORVASC [Concomitant]
     Dosage: 5 MG, UNK
  3. OXYCONTIN [Concomitant]
     Dosage: 20 MG CR, UNK
  4. NORCO [Concomitant]
     Dosage: 10-325 MG

REACTIONS (2)
  - Nasal inflammation [Unknown]
  - Dyspnoea [Unknown]
